FAERS Safety Report 7831777-0 (Version None)
Quarter: 2011Q4

REPORT INFORMATION
  Report Type: 
  Country: None (occurrence: None)
  Receive Date: 20111021
  Receipt Date: 20111014
  Transmission Date: 20120403
  Serious: Yes (Other)
  Sender: FDA-Public Use
  Company Number: US-TYCO HEALTHCARE/MALLINCKRODT-T201102086

PATIENT
  Age: 9 Year

DRUGS (1)
  1. MORPHINE [Suspect]
     Route: 048

REACTIONS (5)
  - ISCHAEMIA [None]
  - TOXICITY TO VARIOUS AGENTS [None]
  - TOXIC ENCEPHALOPATHY [None]
  - APALLIC SYNDROME [None]
  - HYPOXIA [None]
